FAERS Safety Report 17913697 (Version 3)
Quarter: 2020Q4

REPORT INFORMATION
  Report Type: Report from Study
  Country: GB (occurrence: GB)
  Receive Date: 20200618
  Receipt Date: 20201001
  Transmission Date: 20210113
  Serious: Yes (Other)
  Sender: FDA-Public Use
  Company Number: NVSC2020GB148968

PATIENT
  Age: 30 Year
  Sex: Female

DRUGS (5)
  1. HYRIMOZ [Suspect]
     Active Substance: ADALIMUMAB-ADAZ
     Indication: CROHN^S DISEASE
     Dosage: 40MG/0.8MI (EOW)
     Route: 058
  2. HYRIMOZ [Suspect]
     Active Substance: ADALIMUMAB-ADAZ
     Dosage: 160 QHS (DAY1,LOADING DOSE)
     Route: 065
  3. HYRIMOZ [Suspect]
     Active Substance: ADALIMUMAB-ADAZ
     Dosage: 80 MG, QHS (DAY 14, LOADING DOSE)
     Route: 065
  4. HYRIMOZ [Suspect]
     Active Substance: ADALIMUMAB-ADAZ
     Dosage: 40 MG, QW
     Route: 065
     Dates: start: 20200416
  5. HYRIMOZ [Suspect]
     Active Substance: ADALIMUMAB-ADAZ
     Dosage: 40 MG, QHS (LOADING DOSE)
     Route: 065

REACTIONS (14)
  - Headache [Unknown]
  - Injection site erythema [Recovering/Resolving]
  - Dry eye [Unknown]
  - Injection site haemorrhage [Recovered/Resolved]
  - Bone pain [Unknown]
  - Infection [Unknown]
  - Malaise [Unknown]
  - Subcutaneous abscess [Unknown]
  - Dyspepsia [Unknown]
  - Eye disorder [Unknown]
  - Arthralgia [Unknown]
  - Device issue [Unknown]
  - Drug ineffective [Unknown]
  - Haemorrhage [Unknown]
